FAERS Safety Report 5603602-X (Version None)
Quarter: 2008Q1

REPORT INFORMATION
  Report Type: 
  Country: None (occurrence: None)
  Receive Date: 20080122
  Receipt Date: 20070507
  Transmission Date: 20080703
  Serious: Yes (Other)
  Sender: FDA-Public Use
  Company Number: MK-6029043

PATIENT
  Age: 20 Year
  Sex: Female
  Weight: 47.6277 kg

DRUGS (3)
  1. AMNESTEEM [Suspect]
     Indication: ACNE CYSTIC
     Dosage: 10 MG; DAILY; ORAL
     Route: 048
     Dates: start: 20061121, end: 20070101
  2. ACCUTANE [Concomitant]
  3. ORAL CONTRACEPTIVE NOS [Concomitant]

REACTIONS (3)
  - DRUG EXPOSURE DURING PREGNANCY [None]
  - PREGNANCY [None]
  - TREATMENT NONCOMPLIANCE [None]
